FAERS Safety Report 7214523-3 (Version None)
Quarter: 2010Q4

REPORT INFORMATION
  Report Type: 
  Country: None (occurrence: None)
  Receive Date: 20101126
  Receipt Date: 20100226
  Transmission Date: 20110411
  Serious: Yes (Other)
  Sender: FDA-Public Use
  Company Number: WAES 0903USA03179

PATIENT
  Age: 70 Year
  Sex: Female

DRUGS (2)
  1. FOSAMAX [Suspect]
     Indication: OSTEOPOROSIS
     Dosage: DAILY/PO, 70 MG/WKLY/PO
     Route: 048
     Dates: start: 20050516, end: 20071101
  2. FOSAMAX [Suspect]
     Indication: OSTEOPOROSIS
     Dosage: DAILY/PO, 70 MG/WKLY/PO
     Route: 048
     Dates: start: 19960101

REACTIONS (20)
  - ABDOMINAL PAIN UPPER [None]
  - ADVERSE DRUG REACTION [None]
  - BACK PAIN [None]
  - BREAST MASS [None]
  - DIARRHOEA [None]
  - FALL [None]
  - FISTULA [None]
  - GINGIVAL ABSCESS [None]
  - JAW FRACTURE [None]
  - KYPHOSIS [None]
  - MALAISE [None]
  - OSTEOMYELITIS [None]
  - OSTEONECROSIS [None]
  - PROCEDURAL COMPLICATION [None]
  - RIB FRACTURE [None]
  - SCOLIOSIS [None]
  - SINUSITIS [None]
  - SPINAL DEFORMITY [None]
  - SPINAL OSTEOARTHRITIS [None]
  - TOOTH DISORDER [None]
